FAERS Safety Report 17482928 (Version 1)
Quarter: 2020Q1

REPORT INFORMATION
  Report Type: Spontaneous
  Country: US (occurrence: US)
  Receive Date: 20200302
  Receipt Date: 20200302
  Transmission Date: 20200409
  Serious: No
  Sender: FDA-Public Use
  Company Number: US-PFIZER INC-2019098120

PATIENT
  Age: 12 Year
  Sex: Female
  Weight: 22.68 kg

DRUGS (4)
  1. GENOTROPIN [Suspect]
     Active Substance: SOMATROPIN
     Indication: GROWTH HORMONE DEFICIENCY
     Dosage: 0.8 MG, UNK, (6 DAYS PER WEEK)
     Dates: start: 201901
  2. GENOTROPIN [Suspect]
     Active Substance: SOMATROPIN
     Dosage: UNK (ONCE DAILY FOR SIX DAYS AND THEN ONE DAY OFF)(DOSE AS EITHER 1.1 OR 1.8MG)
     Route: 030
     Dates: start: 2019
  3. GENOTROPIN [Suspect]
     Active Substance: SOMATROPIN
     Dosage: 1.8 MG, UNK (6 DAYS A WEEK)
     Dates: start: 201812
  4. GENOTROPIN [Suspect]
     Active Substance: SOMATROPIN
     Dosage: 1 MG, 6 DAYS/WK
     Dates: start: 20190201

REACTIONS (1)
  - Therapeutic product effect incomplete [Unknown]
